FAERS Safety Report 20726989 (Version 1)
Quarter: 2022Q2

REPORT INFORMATION
  Report Type: Spontaneous
  Country: JP (occurrence: JP)
  Receive Date: 20220419
  Receipt Date: 20220419
  Transmission Date: 20220720
  Serious: Yes (Hospitalization)
  Sender: FDA-Public Use
  Company Number: JP-JNJFOC-20220434243

PATIENT
  Age: 11 Year
  Sex: Female

DRUGS (1)
  1. RISPERDAL [Suspect]
     Active Substance: RISPERIDONE
     Indication: Autism spectrum disorder
     Dosage: AT BEDTIME
     Route: 048

REACTIONS (4)
  - Hospitalisation [Unknown]
  - Somnolence [Unknown]
  - Wrong technique in product usage process [Unknown]
  - Off label use [Unknown]
